FAERS Safety Report 6518450 (Version 3)
Quarter: 2018Q4

REPORT INFORMATION
  Report Type: Spontaneous
  Country: JP (occurrence: JP)
  Receive Date: 20080103
  Receipt Date: 20181101
  Transmission Date: 20190205
  Serious: Yes (Hospitalization, Other)
  Sender: FDA-Public Use
  Company Number: PHBS2007JP20922

PATIENT
  Age: 8 Year
  Sex: Female

DRUGS (1)
  1. GLIVEC [Suspect]
     Active Substance: IMATINIB MESYLATE
     Indication: ACUTE LYMPHOCYTIC LEUKAEMIA
     Route: 048
     Dates: start: 200206, end: 200612

REACTIONS (8)
  - Enterocolitis haemorrhagic [Unknown]
  - Bone marrow failure [Unknown]
  - Blood creatine phosphokinase MB increased [Recovering/Resolving]
  - Sepsis [Recovering/Resolving]
  - Hypoproteinaemia [Unknown]
  - Gangrene [Unknown]
  - Purpura fulminans [Unknown]
  - Blood creatine phosphokinase increased [Recovering/Resolving]

NARRATIVE: CASE EVENT DATE: 200510
